FAERS Safety Report 19943177 (Version 1)
Quarter: 2021Q4

REPORT INFORMATION
  Report Type: Spontaneous
  Country: US (occurrence: US)
  Receive Date: 20211011
  Receipt Date: 20211011
  Transmission Date: 20220303
  Serious: No
  Sender: FDA-Public Use
  Company Number: US-JNJFOC-20210957163

PATIENT
  Age: 67 Year
  Sex: Female

DRUGS (1)
  1. MENS ROGAINE EXTRA STRENGTH [Suspect]
     Active Substance: MINOXIDIL
     Indication: Alopecia
     Dosage: FOLLOWED THE LABEL ONCE A DAY IN THE MORNING ALONG WITH A SPECIAL SHAMPOO
     Route: 061
     Dates: start: 20210926

REACTIONS (3)
  - Application site pruritus [Unknown]
  - Product use issue [Unknown]
  - Intentional product misuse [Unknown]
